FAERS Safety Report 8494814-9 (Version None)
Quarter: 2012Q3

REPORT INFORMATION
  Report Type: 
  Country: None (occurrence: None)
  Receive Date: 20120709
  Receipt Date: 20120626
  Transmission Date: 20120928
  Serious: Yes (Hospitalization, Other)
  Sender: FDA-Public Use
  Company Number: US-ELI_LILLY_AND_COMPANY-US201206000705

PATIENT
  Age: 59 Year
  Sex: Female
  Weight: 88.435 kg

DRUGS (4)
  1. COGENTIN [Concomitant]
  2. ZYPREXA RELPREVV [Suspect]
     Indication: SCHIZOPHRENIA
     Dosage: 300 MG, 2/W
     Route: 030
     Dates: start: 20120405, end: 20120419
  3. LISINOPRIL [Concomitant]
  4. SYNTHROID [Concomitant]

REACTIONS (10)
  - AGGRESSION [None]
  - DISORIENTATION [None]
  - CONFUSIONAL STATE [None]
  - PSYCHOTIC DISORDER [None]
  - HYPONATRAEMIA [None]
  - ANXIETY [None]
  - DELIRIUM [None]
  - ILEUS [None]
  - AGITATION [None]
  - ATAXIA [None]
